FAERS Safety Report 9593096 (Version 3)
Quarter: 2013Q4

REPORT INFORMATION
  Report Type: Spontaneous
  Country: AT (occurrence: AT)
  Receive Date: 20131004
  Receipt Date: 20131009
  Transmission Date: 20140711
  Serious: Yes (Disabling)
  Sender: FDA-Public Use
  Company Number: AT-B.I. PHARMACEUTICALS,INC./RIDGEFIELD-2013-BI-28705AP

PATIENT
  Age: 77 Year
  Sex: Female
  Weight: 80 kg

DRUGS (8)
  1. PRADAXA [Suspect]
     Indication: ATRIAL FIBRILLATION
     Dosage: 220 MG
     Dates: start: 20120704, end: 201211
  2. PRADAXA [Suspect]
     Indication: PROSTHESIS USER
     Dosage: 300 MG
     Dates: start: 201211
  3. CONCOR [Concomitant]
     Dosage: 10 NR
  4. DIGIMERCK 0,07 [Concomitant]
     Dosage: 0.07 NR
  5. LASIX 40 [Concomitant]
  6. ACEMIN 5 [Concomitant]
  7. NEUROTOP RET. 300 [Concomitant]
  8. SEROQUEL 25 [Concomitant]

REACTIONS (2)
  - Cerebrovascular accident [Unknown]
  - Drug ineffective [Unknown]
